FAERS Safety Report 15769989 (Version 1)
Quarter: 2018Q4

REPORT INFORMATION
  Report Type: Report from Study
  Country: US (occurrence: US)
  Receive Date: 20181228
  Receipt Date: 20181228
  Transmission Date: 20190205
  Serious: Yes (Other)
  Sender: FDA-Public Use
  Company Number: PHEH2018US054714

PATIENT
  Sex: Female

DRUGS (1)
  1. COSENTYX [Suspect]
     Active Substance: SECUKINUMAB
     Indication: PSORIASIS
     Dosage: 300 MG, QMO
     Route: 058

REACTIONS (8)
  - Skin haemorrhage [Unknown]
  - Drug ineffective [Unknown]
  - Skin fissures [Unknown]
  - Pain [Unknown]
  - Nail atrophy [Unknown]
  - Insomnia [Unknown]
  - Psoriasis [Unknown]
  - Onychomadesis [Unknown]
